FAERS Safety Report 6285943-9 (Version None)
Quarter: 2009Q3

REPORT INFORMATION
  Report Type: 
  Country: None (occurrence: None)
  Receive Date: 20090728
  Receipt Date: 20090629
  Transmission Date: 20100115
  Serious: Yes (Other)
  Sender: FDA-Public Use
  Company Number: GB-BAYER-200912751BNE

PATIENT
  Sex: Male

DRUGS (1)
  1. CIPROFLOXACIN HCL [Suspect]
     Indication: ORCHITIS
     Dosage: UNIT DOSE: 500 MG

REACTIONS (2)
  - BLOOD CREATINE PHOSPHOKINASE INCREASED [None]
  - MYOSITIS [None]
